FAERS Safety Report 7068191-4 (Version None)
Quarter: 2010Q4

REPORT INFORMATION
  Report Type: 
  Country: None (occurrence: None)
  Receive Date: 20101028
  Receipt Date: 20101020
  Transmission Date: 20110411
  Serious: Yes (Other)
  Sender: FDA-Public Use
  Company Number: JP-ROCHE-730016

PATIENT
  Sex: Female
  Weight: 43 kg

DRUGS (4)
  1. VESANOID [Suspect]
     Indication: ACUTE PROMYELOCYTIC LEUKAEMIA
     Route: 048
     Dates: start: 20100213, end: 20100301
  2. ANTINEOPLASTIC AGENT NOS [Concomitant]
     Dosage: DRUG:OTHER ANTINEOPLASTIC AGENTS,NOTE: DOSAGE IS UNCERTAIN,DOSE FORM: UNCERTAINTY
     Route: 065
  3. IDAMYCIN [Concomitant]
     Route: 042
     Dates: start: 20100213, end: 20100215
  4. CYLOCIDE [Concomitant]
     Dosage: ROUTE: INTRAVENOUS (NOT OTHERWISE SPECIFIED)
     Route: 042
     Dates: start: 20100213, end: 20100217

REACTIONS (3)
  - BONE PAIN [None]
  - HAEMOPHILIA [None]
  - THROMBOTIC THROMBOCYTOPENIC PURPURA [None]
